FAERS Safety Report 8321490-8 (Version None)
Quarter: 2012Q2

REPORT INFORMATION
  Report Type: 
  Country: None (occurrence: None)
  Receive Date: 20120430
  Receipt Date: 20120430
  Transmission Date: 20120825
  Serious: Yes (Life-Threatening)
  Sender: FDA-Public Use
  Company Number: None

PATIENT
  Age: 57 Year
  Sex: Female
  Weight: 58.967 kg

DRUGS (1)
  1. LIPITOR [Suspect]
     Indication: BLOOD GLUCOSE INCREASED
     Dosage: 1 TABLET
     Route: 048
     Dates: start: 20120110, end: 20120402

REACTIONS (5)
  - FATIGUE [None]
  - MYALGIA [None]
  - BLOOD CHOLESTEROL INCREASED [None]
  - HEPATITIS [None]
  - BLOOD GLUCOSE INCREASED [None]
